FAERS Safety Report 6285807-0 (Version None)
Quarter: 2009Q3

REPORT INFORMATION
  Report Type: 
  Country: None (occurrence: None)
  Receive Date: 20090728
  Receipt Date: 20090721
  Transmission Date: 20100115
  Serious: Yes (Hospitalization)
  Sender: FDA-Public Use
  Company Number: US-BIOGENIDEC-2009BI017149

PATIENT
  Age: 55 Year
  Sex: Female

DRUGS (2)
  1. TYSABRI [Suspect]
     Indication: MULTIPLE SCLEROSIS
     Route: 042
     Dates: start: 20070427
  2. ANTIBIOTICS (NOS) [Concomitant]
     Indication: PNEUMONIA ASPIRATION

REACTIONS (4)
  - DRUG SPECIFIC ANTIBODY PRESENT [None]
  - PNEUMONIA ASPIRATION [None]
  - PROCEDURAL PAIN [None]
  - PULMONARY OEDEMA [None]
